FAERS Safety Report 16479593 (Version 1)
Quarter: 2019Q2

REPORT INFORMATION
  Report Type: Spontaneous
  Country: AU (occurrence: AU)
  Receive Date: 20190626
  Receipt Date: 20190626
  Transmission Date: 20190711
  Serious: Yes (Other)
  Sender: FDA-Public Use
  Company Number: AU-ASTRAZENECA-2019SE44567

PATIENT
  Age: 85 Year
  Sex: Male
  Weight: 62 kg

DRUGS (9)
  1. XALACOM [Concomitant]
     Active Substance: LATANOPROST\TIMOLOL MALEATE
     Dosage: DOSE AND FREQUENCY UNKNOWN
  2. NORMISON [Concomitant]
     Dosage: 10MG 2N
  3. BICOR [Concomitant]
     Dosage: 2.5MG 1 M
  4. LIPITOR [Concomitant]
     Active Substance: ATORVASTATIN CALCIUM
     Dosage: 40MG 1N
  5. AVANZA [Concomitant]
     Active Substance: MIRTAZAPINE
     Dosage: 30MG 1 N
  6. LYRICA [Concomitant]
     Active Substance: PREGABALIN
     Dosage: 25MG 1N
  7. NEXIUM [Concomitant]
     Active Substance: ESOMEPRAZOLE MAGNESIUM
     Dosage: 40MG 1N
  8. BYDUREON [Suspect]
     Active Substance: EXENATIDE
     Indication: DIABETES MELLITUS
     Dosage: UNKNOWN DOSE, ONCE A WEEK
     Route: 058
     Dates: start: 20190308, end: 20190315
  9. CLOPIDOGREL [Concomitant]
     Active Substance: CLOPIDOGREL BISULFATE
     Dosage: 25MG 1N

REACTIONS (3)
  - Injury associated with device [Recovered/Resolved]
  - Device issue [Unknown]
  - Needle issue [Unknown]

NARRATIVE: CASE EVENT DATE: 20190408
